FAERS Safety Report 10186099 (Version 1)
Quarter: 2014Q2

REPORT INFORMATION
  Report Type: Spontaneous
  Country: US (occurrence: US)
  Receive Date: 20140521
  Receipt Date: 20140521
  Transmission Date: 20141212
  Serious: Yes (Other)
  Sender: FDA-Public Use
  Company Number: US-ASTRAZENECA-2014SE33094

PATIENT
  Age: 72 Year
  Sex: Male
  Weight: 72.6 kg

DRUGS (6)
  1. METOPROLOL [Suspect]
     Indication: CARDIAC DISORDER
     Route: 048
  2. BRILINTA [Suspect]
     Indication: STENT PLACEMENT
     Route: 048
     Dates: start: 2014
  3. PRINAVIL [Concomitant]
     Indication: BLOOD PRESSURE ABNORMAL
  4. PENDAZINE HCT [Concomitant]
     Indication: BLOOD PRESSURE ABNORMAL
     Dosage: 20MG/12.5MG DAILY
  5. ASPRIRIN [Concomitant]
  6. ATORVASTATIN [Concomitant]
     Indication: BLOOD CHOLESTEROL ABNORMAL

REACTIONS (6)
  - Iliac artery occlusion [Unknown]
  - Decreased appetite [Not Recovered/Not Resolved]
  - Sleep disorder due to a general medical condition [Recovering/Resolving]
  - Weight decreased [Not Recovered/Not Resolved]
  - Lethargy [Not Recovered/Not Resolved]
  - Dyspnoea [Not Recovered/Not Resolved]
